FAERS Safety Report 24283379 (Version 2)
Quarter: 2024Q4

REPORT INFORMATION
  Report Type: Spontaneous
  Country: AU (occurrence: AU)
  Receive Date: 20240904
  Receipt Date: 20241218
  Transmission Date: 20250115
  Serious: Yes (Other)
  Sender: ROCHE
  Company Number: AU-ROCHE-10000066653

PATIENT
  Age: 70 Year
  Sex: Female

DRUGS (1)
  1. VABYSMO [Suspect]
     Active Substance: FARICIMAB-SVOA
     Indication: Product used for unknown indication
     Route: 050
     Dates: start: 202308

REACTIONS (24)
  - Swelling face [Unknown]
  - Dyspnoea [Unknown]
  - Palpitations [Unknown]
  - Angina pectoris [Unknown]
  - Mass [Unknown]
  - Cerebral disorder [Unknown]
  - Gait disturbance [Unknown]
  - Viral infection [Unknown]
  - Speech disorder [Unknown]
  - Eye infection [Unknown]
  - Ear pain [Unknown]
  - Hypoacusis [Unknown]
  - Vertigo [Unknown]
  - Headache [Unknown]
  - Ill-defined disorder [Unknown]
  - Mental impairment [Unknown]
  - Disturbance in attention [Unknown]
  - Feeling abnormal [Unknown]
  - Tremor [Unknown]
  - Dizziness [Unknown]
  - Vision blurred [Unknown]
  - Blood pressure increased [Unknown]
  - Cold sweat [Unknown]
  - Fatigue [Unknown]

NARRATIVE: CASE EVENT DATE: 20240101
